FAERS Safety Report 9013875 (Version 1)
Quarter: 2013Q1

REPORT INFORMATION
  Report Type: Spontaneous
  Country: US (occurrence: None)
  Receive Date: 20130109
  Receipt Date: 20130109
  Transmission Date: 20140127
  Serious: No
  Sender: FDA-Public Use
  Company Number: None

PATIENT
  Age: 35 Year
  Sex: Female
  Weight: 60.33 kg

DRUGS (2)
  1. CYMBALTA [Suspect]
     Indication: DEPRESSION
     Dates: start: 20121201, end: 20130108
  2. CYMBALTA [Suspect]
     Indication: ANXIETY
     Dates: start: 20121201, end: 20130108

REACTIONS (12)
  - Decreased appetite [None]
  - Dizziness [None]
  - Hypotension [None]
  - Headache [None]
  - Nausea [None]
  - Confusional state [None]
  - Anxiety [None]
  - Depression [None]
  - Suicidal ideation [None]
  - Dysuria [None]
  - Vomiting [None]
  - Influenza like illness [None]
